FAERS Safety Report 14057766 (Version 2)
Quarter: 2017Q4

REPORT INFORMATION
  Report Type: Spontaneous
  Country: US (occurrence: US)
  Receive Date: 20171006
  Receipt Date: 20171114
  Transmission Date: 20180321
  Serious: Yes (Hospitalization, Other)
  Sender: FDA-Public Use
  Company Number: US-SA-2017SA185250

PATIENT
  Age: 78 Year
  Sex: Female

DRUGS (10)
  1. SOLOSTAR [Suspect]
     Active Substance: DEVICE
     Dates: start: 20170710, end: 20170810
  2. CALCIUM [Concomitant]
     Active Substance: CALCIUM
     Route: 065
  3. LANTUS SOLOSTAR [Suspect]
     Active Substance: INSULIN GLARGINE
     Dosage: DOSE:20 UNIT(S)
     Route: 051
  4. SOLOSTAR [Suspect]
     Active Substance: DEVICE
     Dates: start: 20170825
  5. LANTUS SOLOSTAR [Suspect]
     Active Substance: INSULIN GLARGINE
     Dosage: DOSE:20 UNIT(S)
     Route: 051
     Dates: start: 20170710, end: 20170810
  6. SOLOSTAR [Suspect]
     Active Substance: DEVICE
  7. HUMALOG [Concomitant]
     Active Substance: INSULIN LISPRO
     Dosage: BEFORE MEAL DOSE:5 UNIT(S)
     Route: 065
  8. LANTUS SOLOSTAR [Suspect]
     Active Substance: INSULIN GLARGINE
     Dosage: DOSE:20 UNIT(S)
     Route: 051
     Dates: start: 20170825
  9. AMLODIPINE [Concomitant]
     Active Substance: AMLODIPINE BESYLATE
     Indication: BLOOD PRESSURE MEASUREMENT
     Route: 065
  10. IRON [Concomitant]
     Active Substance: IRON
     Route: 065

REACTIONS (7)
  - Cataract [Unknown]
  - Bradyphrenia [Not Recovered/Not Resolved]
  - Muscular weakness [Recovering/Resolving]
  - Product use issue [Unknown]
  - Cerebrovascular accident [Recovering/Resolving]
  - Glaucoma [Unknown]
  - Paralysis [Unknown]
